FAERS Safety Report 17078313 (Version 4)
Quarter: 2020Q1

REPORT INFORMATION
  Report Type: Report from Study
  Country: MX (occurrence: MX)
  Receive Date: 20191126
  Receipt Date: 20200106
  Transmission Date: 20200409
  Serious: Yes (Other)
  Sender: FDA-Public Use
  Company Number: NVSC2019MX046114

PATIENT
  Age: 13 Year
  Sex: Male
  Weight: 65 kg

DRUGS (3)
  1. TRILEPTAL [Suspect]
     Active Substance: OXCARBAZEPINE
     Indication: SEIZURE
  2. TRILEPTAL [Suspect]
     Active Substance: OXCARBAZEPINE
     Indication: EPILEPSY
     Dosage: 1.5 DF, BID (300 MG)
     Route: 048
     Dates: start: 201807, end: 20191111
  3. TRILEPTAL [Suspect]
     Active Substance: OXCARBAZEPINE
     Indication: TEMPORAL LOBE EPILEPSY
     Dosage: 1 DF, BID (600 MG)
     Route: 048
     Dates: start: 20191111

REACTIONS (4)
  - Pharyngitis [Recovered/Resolved]
  - Therapeutic product effect decreased [Unknown]
  - Insomnia [Recovered/Resolved]
  - Seizure [Recovered/Resolved]

NARRATIVE: CASE EVENT DATE: 201910
